FAERS Safety Report 12233861 (Version 5)
Quarter: 2016Q2

REPORT INFORMATION
  Report Type: Report from Study
  Country: US (occurrence: US)
  Receive Date: 20160404
  Receipt Date: 20160608
  Transmission Date: 20160815
  Serious: Yes (Hospitalization, Other)
  Sender: FDA-Public Use
  Company Number: US-GILEAD-2016-0204770

PATIENT
  Age: 61 Year
  Sex: Female
  Weight: 53.3 kg

DRUGS (19)
  1. AMBRISENTAN [Suspect]
     Active Substance: AMBRISENTAN
     Indication: PULMONARY HYPERTENSION
     Dosage: 5 MG, QD
     Route: 048
     Dates: start: 20130516
  2. AMBRISENTAN [Suspect]
     Active Substance: AMBRISENTAN
     Indication: HEART DISEASE CONGENITAL
  3. VANCOMYCIN [Concomitant]
     Active Substance: VANCOMYCIN
  4. LASIX [Concomitant]
     Active Substance: FUROSEMIDE
  5. CALMOSEPTINE [Concomitant]
     Active Substance: MENTHOL\ZINC OXIDE
  6. METOLAZONE. [Concomitant]
     Active Substance: METOLAZONE
  7. RANITIDINE. [Concomitant]
     Active Substance: RANITIDINE
  8. ADCIRCA [Concomitant]
     Active Substance: TADALAFIL
  9. MIDODRINE [Concomitant]
     Active Substance: MIDODRINE
  10. OXYGEN. [Concomitant]
     Active Substance: OXYGEN
  11. EPOPROSTENOL. [Concomitant]
     Active Substance: EPOPROSTENOL
  12. GABAPENTIN. [Suspect]
     Active Substance: GABAPENTIN
     Indication: NEUROPATHY PERIPHERAL
     Dosage: 100 MG, UNK
     Route: 048
     Dates: start: 20160501, end: 20160513
  13. ASPIRIN 81 [Concomitant]
     Active Substance: ASPIRIN
  14. POTASSIUM CHLORIDE. [Concomitant]
     Active Substance: POTASSIUM CHLORIDE
  15. VELETRI [Concomitant]
     Active Substance: EPOPROSTENOL
  16. MULTIVITAMINES WITH IRON [Concomitant]
  17. SPIRONOLACTONE. [Concomitant]
     Active Substance: SPIRONOLACTONE
  18. PINDOLOL. [Concomitant]
     Active Substance: PINDOLOL
  19. FUROSEMIDE. [Concomitant]
     Active Substance: FUROSEMIDE

REACTIONS (8)
  - Peripheral swelling [Recovered/Resolved]
  - Dehydration [Unknown]
  - Pain in extremity [Recovered/Resolved]
  - Clostridium difficile infection [Not Recovered/Not Resolved]
  - Hypotension [Not Recovered/Not Resolved]
  - Oedema [Recovered/Resolved]
  - Upper respiratory tract infection [Recovered/Resolved]
  - Right ventricular failure [Not Recovered/Not Resolved]

NARRATIVE: CASE EVENT DATE: 201512
